FAERS Safety Report 4891865-8 (Version None)
Quarter: 2006Q1

REPORT INFORMATION
  Report Type: 
  Country: None (occurrence: None)
  Receive Date: 20060123
  Receipt Date: 20060106
  Transmission Date: 20060701
  Serious: Yes (Other)
  Sender: FDA-Public Use
  Company Number: JP200512002620

PATIENT
  Age: 25 Year
  Sex: Male

DRUGS (3)
  1. ZYPREXA (OLANZAPINE) TABLET, DISPENSIBLE [Suspect]
     Indication: SCHIZOPHRENIA
     Dosage: 10 MG, DAILY (1/D), ORAL
     Route: 048
     Dates: start: 20051202
  2. CHLORPROMAZINE [Concomitant]
  3. AKINETON /SCH/(BIPERIDEN LACTATE) [Concomitant]

REACTIONS (1)
  - ERYTHEMA MULTIFORME [None]
